FAERS Safety Report 7080708-2 (Version None)
Quarter: 2010Q4

REPORT INFORMATION
  Report Type: 
  Country: None (occurrence: None)
  Receive Date: 20101025
  Receipt Date: 20101020
  Transmission Date: 20110411
  Serious: Yes (Hospitalization)
  Sender: FDA-Public Use
  Company Number: A0887794A

PATIENT
  Sex: Female

DRUGS (1)
  1. METHYLCELLULOSE (FORMULATION UNKNOWN) [Suspect]
     Dosage: ORAL
     Route: 048

REACTIONS (2)
  - DRUG EFFECT DECREASED [None]
  - INTESTINAL OBSTRUCTION [None]
